FAERS Safety Report 9842605 (Version 1)
Quarter: 2013Q4

REPORT INFORMATION
  Report Type: Spontaneous
  Country: US (occurrence: None)
  Receive Date: 20131223
  Receipt Date: 20131223
  Transmission Date: 20140711
  Serious: No
  Sender: FDA-Public Use
  Company Number: 219151LEO

PATIENT
  Sex: Female

DRUGS (1)
  1. PICATO GEL [Suspect]
     Indication: ACTINIC KERATOSIS
     Route: 061
     Dates: start: 20120913, end: 20120915

REACTIONS (6)
  - Erythema [None]
  - Erythema [None]
  - Scab [None]
  - Application site exfoliation [None]
  - Application site pain [None]
  - Application site pruritus [None]
